FAERS Safety Report 5281440-8 (Version None)
Quarter: 2007Q1

REPORT INFORMATION
  Report Type: 
  Country: None (occurrence: None)
  Receive Date: 20070330
  Receipt Date: 20070322
  Transmission Date: 20070707
  Serious: Yes (Disabling, Other)
  Sender: FDA-Public Use
  Company Number: US-BAYER-200711000BWH

PATIENT
  Age: 54 Year
  Sex: Male

DRUGS (2)
  1. AVELOX [Suspect]
     Indication: SINUSITIS
     Dosage: TOTAL DAILY DOSE: 400 MG  UNIT DOSE: 400 MG
     Route: 048
     Dates: start: 20040528, end: 20040528
  2. AUGMENTIN '125' [Concomitant]

REACTIONS (28)
  - ABASIA [None]
  - ANXIETY [None]
  - ARTHRALGIA [None]
  - ARTHROPATHY [None]
  - ASTHENIA [None]
  - CYST [None]
  - DEPERSONALISATION [None]
  - DYSSTASIA [None]
  - ERYTHEMA [None]
  - GAIT DISTURBANCE [None]
  - INSOMNIA [None]
  - JOINT INSTABILITY [None]
  - LIGAMENT DISORDER [None]
  - LIGAMENT INJURY [None]
  - MUSCLE SPASMS [None]
  - MUSCULAR WEAKNESS [None]
  - MUSCULOSKELETAL DISCOMFORT [None]
  - NERVOUS SYSTEM DISORDER [None]
  - OEDEMA PERIPHERAL [None]
  - PAIN [None]
  - PAIN IN EXTREMITY [None]
  - PANIC REACTION [None]
  - PHOTOPHOBIA [None]
  - RENAL CYST [None]
  - TENDON DISORDER [None]
  - TENDON NEOPLASM [None]
  - TENDON PAIN [None]
  - VITREOUS FLOATERS [None]
